FAERS Safety Report 8162566-8 (Version None)
Quarter: 2012Q1

REPORT INFORMATION
  Report Type: 
  Country: None (occurrence: None)
  Receive Date: 20120224
  Receipt Date: 20120216
  Transmission Date: 20120608
  Serious: Yes (Other)
  Sender: FDA-Public Use
  Company Number: US-BAYER-2012-016724

PATIENT
  Age: 53 Year
  Sex: Female

DRUGS (1)
  1. AVELOX [Suspect]
     Indication: EAR INFECTION
     Dosage: 400 MG TABLET/ ONE DOSE
     Route: 048
     Dates: start: 20120214, end: 20120215

REACTIONS (7)
  - THROAT TIGHTNESS [None]
  - HEAD DISCOMFORT [None]
  - PALPITATIONS [None]
  - HYPERSENSITIVITY [None]
  - EAR CONGESTION [None]
  - HALLUCINATION [None]
  - EYE SWELLING [None]
